FAERS Safety Report 7786973-8 (Version None)
Quarter: 2011Q3

REPORT INFORMATION
  Report Type: 
  Country: None (occurrence: None)
  Receive Date: 20110929
  Receipt Date: 20110923
  Transmission Date: 20111222
  Serious: Yes (Life-Threatening, Hospitalization, Other)
  Sender: FDA-Public Use
  Company Number: FR-PFIZER INC-2011226475

PATIENT
  Age: 67 Year
  Sex: Male

DRUGS (12)
  1. IDARUBICIN HCL [Suspect]
     Indication: ACUTE MYELOID LEUKAEMIA
     Dosage: UNK
     Route: 042
     Dates: start: 20110729, end: 20110803
  2. BELUSTINE [Concomitant]
     Indication: ACUTE MYELOID LEUKAEMIA
     Dosage: UNK
     Dates: start: 20110729, end: 20110729
  3. CYTARABINE [Suspect]
     Indication: ACUTE MYELOID LEUKAEMIA
     Dosage: UNK
     Route: 042
     Dates: start: 20110729, end: 20110805
  4. TIENAM [Suspect]
     Dosage: 1 G, 2X/DAY
     Route: 042
     Dates: start: 20110804, end: 20110816
  5. OFLOXACIN [Suspect]
     Dosage: 200 MG, 2X/DAY
     Route: 042
     Dates: start: 20110731, end: 20110812
  6. CEFTAZIDIME SODIUM [Concomitant]
     Indication: PYREXIA
     Dosage: UNK
     Dates: start: 20110729, end: 20110804
  7. TIENAM [Suspect]
     Indication: PYREXIA
     Dosage: UNK
     Route: 042
     Dates: start: 20110722, end: 20110729
  8. AMIKACIN [Suspect]
     Indication: PYREXIA
     Dosage: UNK
     Dates: start: 20110722, end: 20110724
  9. AMIKACIN [Suspect]
     Dosage: UNK
     Route: 042
     Dates: start: 20110804, end: 20110806
  10. VANCOMYCIN [Suspect]
     Indication: PYREXIA
     Dosage: 2 G, DAILY
     Route: 042
     Dates: start: 20110729, end: 20110812
  11. AMBISOME [Suspect]
     Dosage: 240 MG, DAILY
     Route: 042
     Dates: start: 20110802, end: 20110812
  12. ZOVIRAX [Concomitant]
     Indication: PROPHYLAXIS
     Dosage: UNK
     Dates: start: 20110804

REACTIONS (4)
  - METABOLIC ACIDOSIS [None]
  - BONE MARROW FAILURE [None]
  - RENAL FAILURE [None]
  - DRUG RASH WITH EOSINOPHILIA AND SYSTEMIC SYMPTOMS [None]
